FAERS Safety Report 7425627-4 (Version None)
Quarter: 2011Q2

REPORT INFORMATION
  Report Type: 
  Country: None (occurrence: None)
  Receive Date: 20110412
  Receipt Date: 20110404
  Transmission Date: 20111010
  Serious: Yes (Other)
  Sender: FDA-Public Use
  Company Number: NSR_00217_2011

PATIENT
  Sex: Male

DRUGS (3)
  1. FLUOXETINE [Concomitant]
  2. FLUOXETINE [Suspect]
     Indication: ANXIETY
     Dosage: (DF), (50 MG, DAILY ORAL)
     Route: 048
  3. FLUOXETINE [Suspect]
     Indication: OBSESSIVE-COMPULSIVE DISORDER
     Dosage: (DF), (50 MG, DAILY ORAL)
     Route: 048

REACTIONS (7)
  - NEGATIVE THOUGHTS [None]
  - SCHOOL REFUSAL [None]
  - ABNORMAL BEHAVIOUR [None]
  - AGGRESSION [None]
  - ANGER [None]
  - DRUG EFFECT DECREASED [None]
  - PRODUCT QUALITY ISSUE [None]
